FAERS Safety Report 21890657 (Version 6)
Quarter: 2023Q2

REPORT INFORMATION
  Report Type: Report from Study
  Country: US (occurrence: US)
  Receive Date: 20230120
  Receipt Date: 20230412
  Transmission Date: 20230722
  Serious: Yes (Hospitalization)
  Sender: FDA-Public Use
  Company Number: US-002147023-NVSC2023US011006

PATIENT
  Age: 71 Year
  Sex: Female
  Weight: 62.6 kg

DRUGS (23)
  1. ONDANSETRON [Suspect]
     Active Substance: ONDANSETRON
     Indication: Nausea
     Dosage: UNK
     Route: 065
     Dates: start: 20230112, end: 20230117
  2. ONDANSETRON [Suspect]
     Active Substance: ONDANSETRON
     Indication: Vomiting
  3. GEMCITABINE [Suspect]
     Active Substance: GEMCITABINE
     Indication: Pancreatic carcinoma
     Dosage: 1740 MG, QW
     Route: 042
     Dates: start: 20230103, end: 20230117
  4. GEMCITABINE [Suspect]
     Active Substance: GEMCITABINE
     Dosage: 1740 MG, QW
     Route: 042
     Dates: start: 20230131
  5. PACLITAXEL [Suspect]
     Active Substance: PACLITAXEL
     Indication: Pancreatic carcinoma
     Dosage: 220 MG, QW
     Route: 042
     Dates: start: 20230103, end: 20230117
  6. PACLITAXEL [Suspect]
     Active Substance: PACLITAXEL
     Dosage: 220 MG, QW
     Route: 042
     Dates: start: 20230131
  7. INVESTIGATIONAL PRODUCT [Suspect]
     Active Substance: INVESTIGATIONAL PRODUCT
     Indication: Pancreatic carcinoma
     Dosage: CODE NOT BROKEN
     Route: 042
     Dates: start: 20230103, end: 20230117
  8. INVESTIGATIONAL PRODUCT [Suspect]
     Active Substance: INVESTIGATIONAL PRODUCT
     Indication: Pancreatic carcinoma
     Dosage: CODE NOT BROKEN
     Route: 042
     Dates: start: 20230103, end: 20230117
  9. PLACEBO [Suspect]
     Active Substance: UNSPECIFIED INGREDIENT
     Indication: Pancreatic carcinoma
     Dosage: CODE NOT BROKEN
     Route: 042
     Dates: start: 20230103, end: 20230117
  10. INVESTIGATIONAL PRODUCT [Suspect]
     Active Substance: INVESTIGATIONAL PRODUCT
     Dosage: CODE NOT BROKEN
     Route: 042
     Dates: start: 20230131
  11. INVESTIGATIONAL PRODUCT [Suspect]
     Active Substance: INVESTIGATIONAL PRODUCT
     Dosage: CODE NOT BROKEN
     Route: 042
     Dates: start: 20230131
  12. PLACEBO [Suspect]
     Active Substance: UNSPECIFIED INGREDIENT
     Dosage: CODE NOT BROKEN
     Route: 042
     Dates: start: 20230131
  13. CEFEPIME [Suspect]
     Active Substance: CEFEPIME HYDROCHLORIDE
     Indication: Product used for unknown indication
     Dosage: UNK
     Route: 065
  14. LACTATED RINGERS SOLUTION [Suspect]
     Active Substance: CALCIUM CHLORIDE\POTASSIUM CHLORIDE\SODIUM CHLORIDE\SODIUM LACTATE
     Indication: Premedication
     Dosage: UNK
     Route: 065
     Dates: start: 20230112, end: 20230117
  15. VANCOMYCIN [Suspect]
     Active Substance: VANCOMYCIN
     Indication: Infection
     Dosage: UNK
     Route: 065
     Dates: start: 20230112, end: 20230112
  16. VANCOMYCIN [Suspect]
     Active Substance: VANCOMYCIN
     Dosage: UNK
     Route: 065
     Dates: start: 20230112, end: 20230113
  17. LOSARTAN [Concomitant]
     Active Substance: LOSARTAN
     Indication: Hypertension
     Dosage: UNK
     Route: 065
     Dates: start: 2012
  18. VITAMIN D3 [Concomitant]
     Active Substance: CHOLECALCIFEROL
     Indication: General physical condition
     Dosage: UNK
     Route: 048
     Dates: start: 2012
  19. ROSUVASTATIN CALCIUM [Concomitant]
     Active Substance: ROSUVASTATIN CALCIUM
     Indication: Hyperlipidaemia
     Dosage: UNK
     Route: 065
     Dates: start: 2021
  20. ELIQUIS [Concomitant]
     Active Substance: APIXABAN
     Indication: Splenic vein thrombosis
     Dosage: UNK
     Route: 048
     Dates: start: 20230103, end: 20230112
  21. LIDOCAINE\PRILOCAINE [Concomitant]
     Active Substance: LIDOCAINE\PRILOCAINE
     Indication: Analgesic therapy
     Dosage: UNK
     Route: 061
     Dates: start: 20230103
  22. AMIODARONE [Concomitant]
     Active Substance: AMIODARONE
     Indication: Atrial fibrillation
     Dosage: UNK
     Route: 065
     Dates: start: 20230112, end: 20230113
  23. PANTOPRAZOLE [Concomitant]
     Active Substance: PANTOPRAZOLE
     Indication: Gastrooesophageal reflux disease
     Dosage: UNK
     Route: 065
     Dates: start: 20230112

REACTIONS (1)
  - Shock haemorrhagic [Recovered/Resolved]

NARRATIVE: CASE EVENT DATE: 20230112
